FAERS Safety Report 15250107 (Version 1)
Quarter: 2018Q3

REPORT INFORMATION
  Report Type: Spontaneous
  Country: CA (occurrence: CA)
  Receive Date: 20180807
  Receipt Date: 20180807
  Transmission Date: 20181010
  Serious: Yes (Other)
  Sender: FDA-Public Use
  Company Number: CA-B.I. PHARMACEUTICALS,INC./RIDGEFIELD-2018-BI-039151

PATIENT
  Age: 50 Year
  Sex: Male

DRUGS (4)
  1. GILOTRIF [Suspect]
     Active Substance: AFATINIB
     Indication: NON-SMALL CELL LUNG CANCER METASTATIC
     Route: 048
     Dates: start: 201409
  2. GILOTRIF [Suspect]
     Active Substance: AFATINIB
     Indication: METASTASES TO BONE
     Route: 048
     Dates: end: 20170601
  3. GILOTRIF [Suspect]
     Active Substance: AFATINIB
     Indication: EGFR GENE MUTATION
     Route: 048
     Dates: start: 20140801, end: 201408
  4. GILOTRIF [Suspect]
     Active Substance: AFATINIB
     Indication: METASTASES TO LIVER

REACTIONS (9)
  - Mucosal inflammation [Recovered/Resolved]
  - Hemiparesis [Unknown]
  - Rash [Unknown]
  - Gene mutation [Unknown]
  - Dyspnoea [Recovering/Resolving]
  - Seizure [Unknown]
  - Pain in extremity [Unknown]
  - Metastases to central nervous system [Unknown]
  - Malignant neoplasm progression [Unknown]

NARRATIVE: CASE EVENT DATE: 20140908
